FAERS Safety Report 16929671 (Version 1)
Quarter: 2019Q4

REPORT INFORMATION
  Report Type: Spontaneous
  Country: DE (occurrence: DE)
  Receive Date: 20191017
  Receipt Date: 20191017
  Transmission Date: 20200122
  Serious: Yes (Other)
  Sender: FDA-Public Use
  Company Number: DE-TAKEDA-2019TUS056113

PATIENT

DRUGS (2)
  1. ALUNBRIG [Suspect]
     Active Substance: BRIGATINIB
     Indication: ADENOCARCINOMA
     Dosage: UNK
     Route: 065
     Dates: start: 201903, end: 201908
  2. ALUNBRIG [Suspect]
     Active Substance: BRIGATINIB
     Dosage: 120 MILLIGRAM, QD
     Route: 065
     Dates: start: 201908

REACTIONS (2)
  - Adenocarcinoma [Unknown]
  - General physical health deterioration [Unknown]
